FAERS Safety Report 25368865 (Version 1)
Quarter: 2025Q2

REPORT INFORMATION
  Report Type: Spontaneous
  Country: KR (occurrence: KR)
  Receive Date: 20250528
  Receipt Date: 20250528
  Transmission Date: 20250717
  Serious: Yes (Other)
  Sender: PFIZER
  Company Number: KR-PFIZER INC-202500109084

PATIENT
  Age: 79 Year
  Sex: Female
  Weight: 47.4 kg

DRUGS (1)
  1. INLYTA [Suspect]
     Active Substance: AXITINIB
     Indication: Renal cancer
     Dosage: 10 MG, 2X/DAY
     Dates: start: 20240718, end: 20240806

REACTIONS (1)
  - Thrombocytopenia [Not Recovered/Not Resolved]

NARRATIVE: CASE EVENT DATE: 20240727
